FAERS Safety Report 8394242 (Version 3)
Quarter: 2012Q4

REPORT INFORMATION
  Report Type: 
  Country: US (occurrence: US)
  Receive Date: 20120125
  Receipt Date: 20121129
  Transmission Date: 20130627
  Serious: Yes (Life-Threatening, Other)
  Sender: FDA-Public Use
  Company Number: 2012SP003191

PATIENT
  Age: 33 Year
  Sex: Male
  Weight: 94 kg

DRUGS (2)
  1. OMNARIS NASAL SPRAY [Suspect]
     Indication: SEASONAL ALLERGY
     Route: 045
     Dates: start: 20121107, end: 201211
  2. PRILOSEC /00661201/ [Concomitant]
     Indication: GASTROOESOPHAGEAL REFLUX DISEASE

REACTIONS (2)
  - Bronchospasm [Recovered/Resolved]
  - Pneumonia [Recovering/Resolving]
